FAERS Safety Report 7788723-8 (Version None)
Quarter: 2011Q3

REPORT INFORMATION
  Report Type: 
  Country: None (occurrence: None)
  Receive Date: 20110928
  Receipt Date: 20110920
  Transmission Date: 20111222
  Serious: Yes (Hospitalization)
  Sender: FDA-Public Use
  Company Number: AUR-APL-2011-05134

PATIENT
  Sex: Female

DRUGS (18)
  1. LEVOTHYROXINE SODIUM [Concomitant]
  2. METOPROLOL TARTRATE [Suspect]
     Indication: PRODUCT USED FOR UNKNOWN INDICATION
     Dosage: 25 MG (25 MG, 1 IN 1 D), ORAL
     Route: 048
     Dates: start: 20100331
  3. IBUPROFEN [Suspect]
     Indication: RHEUMATOID ARTHRITIS
     Dosage: 1200 MG (600 MG, 2 IN1 D), ORAL
     Route: 048
     Dates: start: 20091019
  4. CP-690, 550 [Suspect]
     Indication: PRODUCT USED FOR UNKNOWN INDICATION
  5. LANTUS [Suspect]
     Indication: DIABETES MELLITUS
     Dosage: SUBCUTANEOUS
     Route: 058
     Dates: start: 20110408
  6. ONE-A-DAY CHOLESTEROL PLUS VIT. [Concomitant]
  7. GLUCOPHAGE [Suspect]
     Indication: DIABETES MELLITUS
     Dosage: 1000 MG (500 MG, 2 IN 1 D, ORAL
     Route: 048
     Dates: start: 19960101
  8. TRILIPIX [Suspect]
     Indication: BLOOD CHOLESTEROL
     Dosage: 135 MG (135 MG, 1 IN 1 D), ORAL
     Route: 048
     Dates: start: 20090331
  9. ZOLOFT [Suspect]
     Indication: DEPRESSION
     Dosage: 100 MG (50 MG, 2 IN 1 D), ORAL
     Route: 048
     Dates: start: 20000101
  10. IRON (IRON) [Concomitant]
  11. ARTIFICIAL TEARS (HYPROMELLOSE) [Concomitant]
  12. SPIRONOLACTONE [Suspect]
     Indication: FLUID RETENTION
     Dosage: 200 MG (100 MG, 2 IN 1 D), ORAL
     Route: 048
     Dates: start: 19960101
  13. VYTORIN [Suspect]
     Indication: HYPERLIPIDAEMIA
     Dosage: 10/40 MG, ORAL
     Route: 048
     Dates: start: 20090115
  14. VIT. B COMPLEX (VITAMIN-B-KOMPLEX STANDARD) [Concomitant]
  15. PEPCID [Concomitant]
  16. ACTOS [Suspect]
     Indication: DIABETES MELLITUS
     Dosage: 30 MG (30 MG, 1 IN 1 D, ORAL
     Route: 048
     Dates: start: 20100331
  17. SPRINGHILL CALCIUM W/VIT D PLUS IRON [Concomitant]
  18. HYDROCHLOROTHIAZIDE [Concomitant]

REACTIONS (5)
  - ELECTROCARDIOGRAM ST-T CHANGE [None]
  - PAIN IN EXTREMITY [None]
  - CARDIAC STRESS TEST ABNORMAL [None]
  - MYOCARDIAL ISCHAEMIA [None]
  - CHEST PAIN [None]
